FAERS Safety Report 9841422 (Version 2)
Quarter: 2014Q1

REPORT INFORMATION
  Report Type: Report from Study
  Country: US (occurrence: US)
  Receive Date: 20140124
  Receipt Date: 20140313
  Transmission Date: 20141002
  Serious: Yes (Hospitalization, Other)
  Sender: FDA-Public Use
  Company Number: US-JNJFOC-20140111468

PATIENT
  Age: 69 Year
  Sex: Male
  Weight: 79.38 kg

DRUGS (12)
  1. REMICADE [Suspect]
     Indication: RHEUMATOID ARTHRITIS
     Route: 042
     Dates: start: 2013
  2. REMICADE [Suspect]
     Indication: RHEUMATOID ARTHRITIS
     Route: 042
  3. METFORMIN [Concomitant]
     Indication: DIABETES MELLITUS
     Route: 048
  4. PRADAXA [Concomitant]
     Indication: ANTICOAGULANT THERAPY
     Route: 048
     Dates: start: 2011
  5. RAPAFLO [Concomitant]
     Indication: PROSTATOMEGALY
     Route: 048
     Dates: start: 2013
  6. MYRBETRIQ [Concomitant]
     Indication: PROSTATOMEGALY
     Route: 048
     Dates: start: 201312
  7. GLIMEPIRIDE [Concomitant]
     Indication: DIABETES MELLITUS
     Route: 048
     Dates: start: 201311
  8. PAROXETINE [Concomitant]
     Indication: ANXIETY
     Route: 048
     Dates: start: 2012
  9. LEVOTHYROXINE [Concomitant]
     Indication: THYROID DISORDER
     Route: 048
     Dates: start: 2012
  10. SIMVASTATIN [Concomitant]
     Indication: BLOOD CHOLESTEROL INCREASED
     Route: 048
  11. LANTUS [Concomitant]
     Indication: DIABETES MELLITUS
     Dosage: 10-15MG
     Route: 058
     Dates: start: 2011
  12. NOVOLIN-R [Concomitant]
     Indication: DIABETES MELLITUS
     Route: 058
     Dates: start: 2011

REACTIONS (4)
  - Pneumonia [Recovered/Resolved]
  - Blood sodium decreased [Unknown]
  - Bronchitis [Recovered/Resolved]
  - Spinal column stenosis [Recovered/Resolved]
